FAERS Safety Report 25772930 (Version 6)
Quarter: 2025Q4

REPORT INFORMATION
  Report Type: Spontaneous
  Country: CA (occurrence: CA)
  Receive Date: 20250908
  Receipt Date: 20251024
  Transmission Date: 20260117
  Serious: No
  Sender: PFIZER
  Company Number: CA-PFIZER INC-202500172754

PATIENT
  Age: 61 Year
  Sex: Female

DRUGS (1)
  1. PREMARIN [Suspect]
     Active Substance: ESTROGENS, CONJUGATED
     Dosage: UNK
     Route: 067

REACTIONS (2)
  - Device use issue [Unknown]
  - Incorrect dose administered by device [Unknown]
